FAERS Safety Report 6824599-0 (Version None)
Quarter: 2010Q3

REPORT INFORMATION
  Report Type: 
  Country: None (occurrence: None)
  Receive Date: 20100708
  Receipt Date: 20061103
  Transmission Date: 20110219
  Serious: No
  Sender: FDA-Public Use
  Company Number: US-PFIZER INC-2006138784

PATIENT
  Sex: Female
  Weight: 58.06 kg

DRUGS (4)
  1. CHANTIX [Suspect]
     Indication: EX-TOBACCO USER
     Route: 048
     Dates: start: 20061031
  2. ALL OTHER THERAPEUTIC PRODUCTS [Suspect]
     Indication: MALAISE
  3. AMBIEN [Concomitant]
     Indication: SLEEP DISORDER
  4. TYLENOL [Concomitant]
     Indication: HEADACHE

REACTIONS (5)
  - DECREASED APPETITE [None]
  - FATIGUE [None]
  - FLUSHING [None]
  - HYPERSENSITIVITY [None]
  - MALAISE [None]
